FAERS Safety Report 4823953-6 (Version None)
Quarter: 2005Q4

REPORT INFORMATION
  Report Type: 
  Country: None (occurrence: None)
  Receive Date: 20051108
  Receipt Date: 20051027
  Transmission Date: 20060501
  Serious: Yes (Other)
  Sender: FDA-Public Use
  Company Number: USA0510112197

PATIENT
  Age: 5 Year
  Sex: Male

DRUGS (1)
  1. STRATTERA [Suspect]
     Dosage: 10 MG
     Dates: start: 20050727, end: 20051027

REACTIONS (3)
  - CONDITION AGGRAVATED [None]
  - CONVULSION [None]
  - HEART RATE INCREASED [None]
